FAERS Safety Report 17102861 (Version 1)
Quarter: 2019Q4

REPORT INFORMATION
  Report Type: Spontaneous
  Country: US (occurrence: US)
  Receive Date: 20191106
  Receipt Date: 20191106
  Transmission Date: 20200122
  Serious: No
  Sender: FDA-Public Use
  Company Number: None

PATIENT
  Age: 82 Year
  Sex: Male

DRUGS (1)
  1. TEMOZOLOMIDE 140MG CAP 3X5 [Suspect]
     Active Substance: TEMOZOLOMIDE
     Route: 048
     Dates: start: 201911

REACTIONS (1)
  - Therapy change [None]

NARRATIVE: CASE EVENT DATE: 20191106
